FAERS Safety Report 16154172 (Version 3)
Quarter: 2020Q3

REPORT INFORMATION
  Report Type: Spontaneous
  Country: GB (occurrence: GB)
  Receive Date: 20190403
  Receipt Date: 20200803
  Transmission Date: 20201102
  Serious: Yes (Life-Threatening, Hospitalization, Other)
  Sender: FDA-Public Use
  Company Number: GB-PERRIGO-19GB004068

PATIENT
  Age: 86 Year
  Sex: Male

DRUGS (13)
  1. RAMIPRIL. [Concomitant]
     Active Substance: RAMIPRIL
  2. CALCIUM CARBONATE. [Concomitant]
     Active Substance: CALCIUM CARBONATE
  3. PARACETAMOL [Suspect]
     Active Substance: ACETAMINOPHEN
     Indication: PRODUCT USED FOR UNKNOWN INDICATION
     Dosage: 4 G, QD
     Route: 048
  4. HEPARIN [Concomitant]
     Active Substance: HEPARIN SODIUM
     Indication: PROPHYLAXIS
  5. THIAMINE. [Concomitant]
     Active Substance: THIAMINE
  6. FLUCLOXACILLIN [Interacting]
     Active Substance: FLUCLOXACILLIN
     Indication: STAPHYLOCOCCAL SEPSIS
     Dosage: 12 G, QD
     Route: 042
  7. INSULIN [Concomitant]
     Active Substance: INSULIN NOS
     Dosage: BIPHASIC INSULIN
  8. PYRIDOXINE [Concomitant]
     Active Substance: PYRIDOXINE
  9. INSULIN [Concomitant]
     Active Substance: INSULIN NOS
     Dosage: FIXED?RATE INSULIN INFUSION
  10. MIRTAZAPINE. [Concomitant]
     Active Substance: MIRTAZAPINE
  11. SITAGLIPTIN [Concomitant]
     Active Substance: SITAGLIPTIN
  12. METFORMIN [Concomitant]
     Active Substance: METFORMIN HYDROCHLORIDE
  13. MEROPENEM. [Concomitant]
     Active Substance: MEROPENEM
     Indication: SEPTIC SHOCK
     Dosage: 1 G, TID

REACTIONS (3)
  - Metabolic acidosis [Recovering/Resolving]
  - Drug interaction [Recovering/Resolving]
  - Respiratory failure [Recovering/Resolving]
